FAERS Safety Report 19855790 (Version 2)
Quarter: 2021Q3

REPORT INFORMATION
  Report Type: Other
  Country: IT (occurrence: IT)
  Receive Date: 20210920
  Receipt Date: 20210930
  Transmission Date: 20211014
  Serious: Yes (Hospitalization)
  Sender: FDA-Public Use
  Company Number: IT-ROCHE-2910929

PATIENT
  Age: 72 Year
  Sex: Female

DRUGS (3)
  1. COPANLISIB. [Suspect]
     Active Substance: COPANLISIB
     Indication: PRODUCT USED FOR UNKNOWN INDICATION
     Dosage: 98.4 MG
     Route: 042
     Dates: start: 20210809
  2. BENDAMUSTINE [Suspect]
     Active Substance: BENDAMUSTINE
     Indication: PRODUCT USED FOR UNKNOWN INDICATION
     Dosage: 208 MG
     Route: 042
     Dates: start: 20210810
  3. RITUXIMAB. [Suspect]
     Active Substance: RITUXIMAB
     Indication: PRODUCT USED FOR UNKNOWN INDICATION
     Dosage: 600 MG
     Route: 041
     Dates: start: 20210810

REACTIONS (4)
  - Intestinal perforation [Recovering/Resolving]
  - Wrong product administered [Unknown]
  - Asthenia [Recovered/Resolved]
  - Abdominal pain [Unknown]

NARRATIVE: CASE EVENT DATE: 20210813
